FAERS Safety Report 5129211-7 (Version None)
Quarter: 2006Q4

REPORT INFORMATION
  Report Type: 
  Country: None (occurrence: None)
  Receive Date: 20061012
  Receipt Date: 20061004
  Transmission Date: 20070319
  Serious: Yes (Other)
  Sender: FDA-Public Use
  Company Number: HQWYE636305OCT06

PATIENT
  Age: 47 Year
  Sex: Male
  Weight: 59.02 kg

DRUGS (9)
  1. TYGACIL [Suspect]
     Indication: PLEURAL EFFUSION
     Dosage: 100 MG LOADING DOSE, THEN 50 MG EVERY 12 HOURS, INTRAVENOUS
     Route: 042
     Dates: start: 20061003
  2. COUMADIN [Suspect]
     Dosage: SEE IMAGE
     Dates: start: 20061001
  3. COUMADIN [Suspect]
     Dosage: SEE IMAGE
     Dates: start: 20061002
  4. COUMADIN [Suspect]
     Dosage: SEE IMAGE
     Dates: start: 20061004
  5. EPIVIR [Concomitant]
  6. PROTONIX [Concomitant]
  7. LEVAQUIN [Concomitant]
  8. SPIRONOLACTONE [Concomitant]
  9. KALETRA [Concomitant]

REACTIONS (2)
  - DRUG INTERACTION [None]
  - INTERNATIONAL NORMALISED RATIO INCREASED [None]
